FAERS Safety Report 8852317 (Version 1)
Quarter: 2012Q4

REPORT INFORMATION
  Report Type: 
  Country: US (occurrence: US)
  Receive Date: 20121022
  Receipt Date: 20121022
  Transmission Date: 20130627
  Serious: Yes (Other)
  Sender: FDA-Public Use
  Company Number: US-PFIZER INC-2012262410

PATIENT
  Age: 40 Year
  Sex: Male

DRUGS (1)
  1. PRISTIQ [Suspect]
     Dosage: 50 mg, 1x/day
     Route: 048

REACTIONS (2)
  - Aggression [Unknown]
  - Homicidal ideation [Unknown]
